FAERS Safety Report 25088512 (Version 2)
Quarter: 2025Q1

REPORT INFORMATION
  Report Type: Report from Study
  Country: CA (occurrence: CA)
  Receive Date: 20250318
  Receipt Date: 20250327
  Transmission Date: 20250409
  Serious: Yes (Other)
  Sender: ALEXION PHARMACEUTICALS
  Company Number: CA-AstraZeneca-CH-00826057A

PATIENT
  Age: 32 Year

DRUGS (2)
  1. ANIFROLUMAB [Suspect]
     Active Substance: ANIFROLUMAB
     Indication: Systemic lupus erythematosus
     Route: 065
  2. BENLYSTA [Concomitant]
     Active Substance: BELIMUMAB
     Route: 065

REACTIONS (6)
  - Lower respiratory tract infection [Unknown]
  - Pneumonitis [Unknown]
  - Nasopharyngitis [Unknown]
  - Vomiting [Unknown]
  - Drug hypersensitivity [Unknown]
  - Wound infection [Unknown]
